FAERS Safety Report 8512045-0 (Version None)
Quarter: 2012Q3

REPORT INFORMATION
  Report Type: 
  Country: None (occurrence: None)
  Receive Date: 20120716
  Receipt Date: 20120712
  Transmission Date: 20120928
  Serious: Yes (Death)
  Sender: FDA-Public Use
  Company Number: AU-B.I. PHARMACEUTICALS,INC./RIDGEFIELD-2012-AU-00744AU

PATIENT
  Age: 70 Year
  Sex: Male
  Weight: 105 kg

DRUGS (3)
  1. PRADAXA [Suspect]
     Dates: start: 20110101
  2. SELECTIVE SEROTONIN REUPTAKE INHIBITOR [Concomitant]
  3. ANTIPLATELET [Concomitant]

REACTIONS (1)
  - MYOCARDIAL INFARCTION [None]
